FAERS Safety Report 16652740 (Version 2)
Quarter: 2019Q3

REPORT INFORMATION
  Report Type: Spontaneous
  Country: JP (occurrence: JP)
  Receive Date: 20190731
  Receipt Date: 20190910
  Transmission Date: 20191004
  Serious: Yes (Hospitalization)
  Sender: FDA-Public Use
  Company Number: PHJP2019JP009961

PATIENT
  Age: 75 Year
  Sex: Male

DRUGS (4)
  1. TARIVID [Concomitant]
     Active Substance: OFLOXACIN
     Indication: PNEUMOCOCCAL INFECTION
     Dosage: UNK UNK, QD BEFORE SLEEP
     Route: 047
     Dates: start: 20170108, end: 20170114
  2. FIRSTCIN [Concomitant]
     Active Substance: CEFOZOPRAN HYDROCHLORIDE
     Indication: PNEUMOCOCCAL INFECTION
     Dosage: 1 G, BID
     Route: 041
     Dates: start: 20170108, end: 20170114
  3. BESTRON [Concomitant]
     Active Substance: CEFMENOXIME HYDROCHLORIDE
     Indication: PNEUMOCOCCAL INFECTION
     Dosage: UNK UNK, QH (FROM 6 TO 24 O^CLOCK)
     Route: 047
     Dates: start: 20170108
  4. VEGAMOX OPHTHALMIC SOLUTION 0.5% [Suspect]
     Active Substance: MOXIFLOXACIN HYDROCHLORIDE
     Indication: PNEUMOCOCCAL INFECTION
     Dosage: UNK, QH
     Route: 047
     Dates: start: 20170108, end: 20170114

REACTIONS (2)
  - Mycotic corneal ulcer [Not Recovered/Not Resolved]
  - Condition aggravated [Not Recovered/Not Resolved]

NARRATIVE: CASE EVENT DATE: 20170114
